FAERS Safety Report 20610359 (Version 1)
Quarter: 2022Q1

REPORT INFORMATION
  Report Type: Spontaneous
  Country: DE (occurrence: DE)
  Receive Date: 20220318
  Receipt Date: 20220318
  Transmission Date: 20220423
  Serious: Yes (Other)
  Sender: FDA-Public Use
  Company Number: DE-NOVARTISPH-NVSC2022DE061074

PATIENT
  Age: 26 Year
  Sex: Male
  Weight: 75 kg

DRUGS (3)
  1. METAMIZOLE SODIUM [Suspect]
     Active Substance: METAMIZOLE SODIUM
     Indication: Product used for unknown indication
     Dosage: 20 DOSAGE FORM (OVER 2 DAYS)
     Route: 048
     Dates: start: 20220208, end: 20220210
  2. ACETAMINOPHEN [Suspect]
     Active Substance: ACETAMINOPHEN
     Indication: Product used for unknown indication
     Dosage: 10 DOSAGE FORM (OVER 2 DAYS)
     Route: 048
     Dates: start: 20220208, end: 20220210
  3. CHOLECALCIFEROL [Suspect]
     Active Substance: CHOLECALCIFEROL
     Indication: Product used for unknown indication
     Dosage: 25 DOSAGE FORM (OVER 2 DAYS, 1000 I.E.)
     Route: 048
     Dates: start: 20220208, end: 20220210

REACTIONS (5)
  - Suicide attempt [Unknown]
  - Intentional self-injury [Unknown]
  - Somnolence [Unknown]
  - Agitation [Unknown]
  - Intentional overdose [Unknown]

NARRATIVE: CASE EVENT DATE: 20220201
